FAERS Safety Report 16960749 (Version 3)
Quarter: 2020Q1

REPORT INFORMATION
  Report Type: Spontaneous
  Country: US (occurrence: US)
  Receive Date: 20191025
  Receipt Date: 20200106
  Transmission Date: 20200409
  Serious: Yes (Other)
  Sender: FDA-Public Use
  Company Number: US-SA-2019SA291087

PATIENT
  Age: 65 Year
  Sex: Female
  Weight: 56.7 kg

DRUGS (4)
  1. ZANTAC 150 (RANITIDINE HYDROCHLORIDE) [Suspect]
     Active Substance: RANITIDINE HYDROCHLORIDE
     Indication: HYPERSENSITIVITY
     Dosage: LOWER DOSE OF ZANTAC
     Route: 065
  2. ZANTAC 150 (RANITIDINE HYDROCHLORIDE) [Suspect]
     Active Substance: RANITIDINE HYDROCHLORIDE
     Indication: GASTROOESOPHAGEAL REFLUX DISEASE
     Dosage: 300 MG, BID
     Route: 065
  3. SYNTHROID [Concomitant]
     Active Substance: LEVOTHYROXINE SODIUM
     Dosage: 75 MG, QD
  4. EPIPEN [Concomitant]
     Active Substance: EPINEPHRINE
     Dosage: ALSO USES EPIPEN LESS

REACTIONS (7)
  - Product availability issue [Unknown]
  - Shock [Unknown]
  - Product use in unapproved indication [Unknown]
  - Pharyngeal swelling [Unknown]
  - Anaphylactic reaction [Unknown]
  - Intentional product use issue [Unknown]
  - Therapeutic response unexpected [Unknown]
